FAERS Safety Report 21244225 (Version 2)
Quarter: 2022Q4

REPORT INFORMATION
  Report Type: Report from Study
  Country: US (occurrence: US)
  Receive Date: 20220823
  Receipt Date: 20221206
  Transmission Date: 20230113
  Serious: No
  Sender: FDA-Public Use
  Company Number: US-NOVARTISTESTPH-NVSC2022US187467

PATIENT
  Sex: Male

DRUGS (1)
  1. ZOLGENSMA [Suspect]
     Active Substance: ONASEMNOGENE ABEPARVOVEC-XIOI
     Indication: Small airways disease
     Dosage: UNK, ONCE/SINGLE
     Route: 042
     Dates: start: 20191113, end: 20191113

REACTIONS (3)
  - Fall [Unknown]
  - Balance disorder [Unknown]
  - Dysstasia [Unknown]
